FAERS Safety Report 12942958 (Version 1)
Quarter: 2016Q4

REPORT INFORMATION
  Report Type: Spontaneous
  Country: US (occurrence: US)
  Receive Date: 20161115
  Receipt Date: 20161115
  Transmission Date: 20170207
  Serious: No
  Sender: FDA-Public Use
  Company Number: US-ELI_LILLY_AND_COMPANY-US201611004601

PATIENT
  Sex: Female

DRUGS (2)
  1. HUMALOG [Suspect]
     Active Substance: INSULIN LISPRO
     Indication: TYPE 1 DIABETES MELLITUS
     Dosage: 4-5 U, TID
     Route: 065
     Dates: start: 201609
  2. HUMALOG [Suspect]
     Active Substance: INSULIN LISPRO
     Dosage: 4-5 U, TID
     Route: 065

REACTIONS (1)
  - Injection site haemorrhage [Unknown]
